FAERS Safety Report 7882011-7 (Version None)
Quarter: 2011Q4

REPORT INFORMATION
  Report Type: 
  Country: None (occurrence: None)
  Receive Date: 20111101
  Receipt Date: 20110607
  Transmission Date: 20120403
  Serious: No
  Sender: FDA-Public Use
  Company Number: US-AMGEN-USASP2011029266

PATIENT
  Age: 68 Year
  Sex: Female

DRUGS (9)
  1. VICODIN [Concomitant]
     Dosage: UNK
  2. PREDNISONE [Concomitant]
     Dosage: 1 MG, UNK
  3. CELEXA [Concomitant]
     Dosage: 10 MG, UNK
  4. ZANTAC [Concomitant]
     Dosage: UNK
  5. MULTI-VITAMIN [Concomitant]
     Dosage: UNK
  6. NAPROXEN [Concomitant]
     Dosage: 250 MG, UNK
  7. ENBREL [Suspect]
     Indication: PRODUCT USED FOR UNKNOWN INDICATION
     Dosage: 50 MG, QWK
     Route: 058
  8. CALCIUM D [Concomitant]
     Dosage: UNK
  9. HYDROXYCHLOROQUINE SULFATE [Concomitant]
     Dosage: 200 MG, UNK

REACTIONS (2)
  - FATIGUE [None]
  - DIZZINESS [None]
